FAERS Safety Report 25398570 (Version 3)
Quarter: 2025Q2

REPORT INFORMATION
  Report Type: Report from Study
  Country: KR (occurrence: KR)
  Receive Date: 20250604
  Receipt Date: 20250620
  Transmission Date: 20250716
  Serious: Yes (Other)
  Sender: ASTELLAS
  Company Number: KR-ASTELLAS-2025-AER-029447

PATIENT
  Age: 64 Year
  Sex: Male
  Weight: 51 kg

DRUGS (12)
  1. ENFORTUMAB VEDOTIN-EJFV [Suspect]
     Active Substance: ENFORTUMAB VEDOTIN-EJFV
     Indication: Transitional cell carcinoma metastatic
     Route: 042
     Dates: start: 20241209
  2. ENFORTUMAB VEDOTIN-EJFV [Suspect]
     Active Substance: ENFORTUMAB VEDOTIN-EJFV
     Route: 042
     Dates: start: 20241216
  3. ENFORTUMAB VEDOTIN-EJFV [Suspect]
     Active Substance: ENFORTUMAB VEDOTIN-EJFV
     Route: 042
     Dates: start: 20241223
  4. ENFORTUMAB VEDOTIN-EJFV [Suspect]
     Active Substance: ENFORTUMAB VEDOTIN-EJFV
     Route: 042
     Dates: start: 20250106
  5. ENFORTUMAB VEDOTIN-EJFV [Suspect]
     Active Substance: ENFORTUMAB VEDOTIN-EJFV
     Route: 042
     Dates: start: 20250113
  6. ENFORTUMAB VEDOTIN-EJFV [Suspect]
     Active Substance: ENFORTUMAB VEDOTIN-EJFV
     Route: 042
     Dates: start: 20250122, end: 20250122
  7. OXYCONTIN [Concomitant]
     Active Substance: OXYCODONE HYDROCHLORIDE
     Indication: Cancer pain
     Dosage: ONGOING
     Route: 048
     Dates: start: 20241031
  8. NUCYNTA [Concomitant]
     Active Substance: TAPENTADOL HYDROCHLORIDE
     Indication: Cancer pain
     Dosage: ONGOING
     Route: 048
     Dates: start: 20241120
  9. ENCOVER [Concomitant]
     Indication: Premedication
     Route: 048
     Dates: start: 20241209
  10. ENCOVER [Concomitant]
     Indication: Decreased appetite
     Dosage: ENCOVER SOLN 200ML, ONGOING
     Route: 048
     Dates: start: 20241216
  11. LACTICARE-HC [Concomitant]
     Indication: Premedication
     Dosage: LACTICARE-HC LOTION 1%, 1.18G/118G, ROUTE REPORTED AS DRA, ONGOING
     Route: 050
     Dates: start: 20241209
  12. LERIZINE [Concomitant]
     Indication: Premedication
     Dosage: ONGOING
     Route: 048
     Dates: start: 20241209

REACTIONS (4)
  - Haemolytic anaemia [Not Recovered/Not Resolved]
  - Neuropathy peripheral [Not Recovered/Not Resolved]
  - Constipation [Not Recovered/Not Resolved]
  - Decreased appetite [Not Recovered/Not Resolved]

NARRATIVE: CASE EVENT DATE: 20241209
